FAERS Safety Report 8998893 (Version 1)
Quarter: 2013Q1

REPORT INFORMATION
  Report Type: Spontaneous
  Country: US (occurrence: US)
  Receive Date: 20130103
  Receipt Date: 20130103
  Transmission Date: 20140127
  Serious: No
  Sender: FDA-Public Use
  Company Number: US-PFIZER INC-2012333182

PATIENT
  Age: 53 Year
  Sex: Male
  Weight: 79 kg

DRUGS (1)
  1. LATANOPROST [Suspect]
     Indication: INTRAOCULAR PRESSURE INCREASED
     Dosage: 1 GTT IN EACH EYE, 1X/DAY
     Route: 047
     Dates: start: 201111

REACTIONS (2)
  - Asthenopia [Not Recovered/Not Resolved]
  - Eye irritation [Not Recovered/Not Resolved]
